FAERS Safety Report 23871526 (Version 2)
Quarter: 2024Q3

REPORT INFORMATION
  Report Type: Spontaneous
  Country: GB (occurrence: GB)
  Receive Date: 20240519
  Receipt Date: 20240723
  Transmission Date: 20241016
  Serious: Yes (Hospitalization, Other)
  Sender: NOVARTIS
  Company Number: GB-002147023-NVSC2024GB100105

PATIENT
  Age: 25 Year
  Sex: Female

DRUGS (1)
  1. KESIMPTA [Suspect]
     Active Substance: OFATUMUMAB
     Indication: Product used for unknown indication
     Dosage: UNK
     Route: 065

REACTIONS (7)
  - Infection [Recovering/Resolving]
  - Urinary tract infection [Recovering/Resolving]
  - Deep vein thrombosis [Recovering/Resolving]
  - Osteomyelitis [Recovering/Resolving]
  - Mobility decreased [Recovering/Resolving]
  - Thermal burn [Recovering/Resolving]
  - Condition aggravated [Recovering/Resolving]
